FAERS Safety Report 7280702-2 (Version None)
Quarter: 2011Q1

REPORT INFORMATION
  Report Type: 
  Country: None (occurrence: None)
  Receive Date: 20110126
  Receipt Date: 20110111
  Transmission Date: 20110831
  Serious: Yes (Death)
  Sender: FDA-Public Use
  Company Number: AUR-APL-2011-00169

PATIENT
  Age: 76 Year
  Sex: Female

DRUGS (2)
  1. PANTOPRAZOLE [Suspect]
     Dosage: ORAL
     Route: 048
  2. SIMVASTATIN [Suspect]
     Dosage: ORAL
     Route: 048

REACTIONS (1)
  - COMPLETED SUICIDE [None]
